FAERS Safety Report 14267875 (Version 2)
Quarter: 2019Q4

REPORT INFORMATION
  Report Type: Spontaneous
  Country: US (occurrence: US)
  Receive Date: 20171211
  Receipt Date: 20191217
  Transmission Date: 20200122
  Serious: Yes (Other)
  Sender: FDA-Public Use
  Company Number: US-ROCHE-1979481

PATIENT
  Age: 40 Year
  Sex: Female

DRUGS (2)
  1. BEVACIZUMAB. [Suspect]
     Active Substance: BEVACIZUMAB
     Indication: HAEMANGIOMA OF RETINA
     Dosage: 3 INJECTIONS
     Route: 031
  2. RANIBIZUMAB. [Suspect]
     Active Substance: RANIBIZUMAB
     Indication: HAEMANGIOMA OF RETINA
     Dosage: 11 INJECTIONS
     Route: 031

REACTIONS (4)
  - Off label use [Unknown]
  - Visual impairment [Unknown]
  - Intentional product use issue [Unknown]
  - Retinal detachment [Unknown]
